FAERS Safety Report 10722762 (Version 2)
Quarter: 2015Q1

REPORT INFORMATION
  Report Type: Spontaneous
  Country: UA (occurrence: UA)
  Receive Date: 20150120
  Receipt Date: 20150129
  Transmission Date: 20150721
  Serious: Yes (Death, Life-Threatening, Hospitalization)
  Sender: FDA-Public Use
  Company Number: UA-ROCHE-1522040

PATIENT
  Age: 81 Year
  Sex: Female

DRUGS (2)
  1. LEVOFLOXACIN. [Suspect]
     Active Substance: LEVOFLOXACIN
     Indication: PNEUMONIA
     Route: 065
  2. CEFTRIAXONE SODIUM. [Suspect]
     Active Substance: CEFTRIAXONE SODIUM
     Indication: PNEUMONIA
     Route: 065

REACTIONS (9)
  - Pyrexia [Unknown]
  - Abdominal pain [Unknown]
  - Azotaemia [Unknown]
  - Pseudomembranous colitis [Unknown]
  - Leukocytosis [Unknown]
  - Pneumonia [Unknown]
  - Pulmonary embolism [Fatal]
  - Multi-organ failure [Unknown]
  - Diarrhoea [Unknown]

NARRATIVE: CASE EVENT DATE: 20140321
